FAERS Safety Report 11096122 (Version 1)
Quarter: 2015Q2

REPORT INFORMATION
  Report Type: Report from Study
  Country: FR (occurrence: FR)
  Receive Date: 20150507
  Receipt Date: 20150507
  Transmission Date: 20150821
  Serious: Yes (Hospitalization)
  Sender: FDA-Public Use
  Company Number: FR-ROCHE-1164872

PATIENT
  Age: 79 Year
  Sex: Male

DRUGS (4)
  1. RITUXIMAB [Suspect]
     Active Substance: RITUXIMAB
     Indication: RHEUMATOID ARTHRITIS
     Route: 042
     Dates: start: 20090116
  2. CORTANCYL [Concomitant]
     Active Substance: PREDNISONE
     Route: 065
  3. RITUXIMAB [Suspect]
     Active Substance: RITUXIMAB
     Route: 042
     Dates: start: 20090130
  4. ORENCIA [Concomitant]
     Active Substance: ABATACEPT
     Route: 065
     Dates: start: 20130516

REACTIONS (11)
  - Colonic abscess [Recovered/Resolved]
  - Arthralgia [Recovered/Resolved]
  - Colitis [Recovered/Resolved]
  - Joint effusion [Recovered/Resolved]
  - Myocardial infarction [Recovered/Resolved]
  - Sepsis syndrome [Recovered/Resolved]
  - Septic shock [Recovered/Resolved]
  - Shock haemorrhagic [Recovered/Resolved]
  - Diverticular perforation [Recovered/Resolved]
  - Gastrointestinal haemorrhage [Recovered/Resolved]
  - Anal abscess [Recovered/Resolved]

NARRATIVE: CASE EVENT DATE: 20090402
